FAERS Safety Report 5623496-6 (Version None)
Quarter: 2008Q1

REPORT INFORMATION
  Report Type: 
  Country: None (occurrence: None)
  Receive Date: 20080212
  Receipt Date: 20080201
  Transmission Date: 20080703
  Serious: Yes (Other)
  Sender: FDA-Public Use
  Company Number: US-PFIZER INC-2008010951

PATIENT
  Sex: Female

DRUGS (1)
  1. DILANTIN [Suspect]
     Route: 048

REACTIONS (4)
  - ASTHENIA [None]
  - CONVULSION [None]
  - DIZZINESS [None]
  - FEELING ABNORMAL [None]
